FAERS Safety Report 5681117-0 (Version None)
Quarter: 2008Q1

REPORT INFORMATION
  Report Type: 
  Country: None (occurrence: None)
  Receive Date: 20080325
  Receipt Date: 20080310
  Transmission Date: 20080703
  Serious: Yes (Hospitalization)
  Sender: FDA-Public Use
  Company Number: 2008000554

PATIENT
  Age: 73 Year
  Sex: Male

DRUGS (1)
  1. ERLOTINIB / PLACEBO (ERLOTINIB HC1) (TABLET (ERLOTINIB HC1) [Suspect]
     Indication: NON-SMALL CELL LUNG CANCER
     Dosage: 150 MG, QD, ORAL
     Route: 048
     Dates: start: 20071204

REACTIONS (2)
  - COLLAPSE OF LUNG [None]
  - PULMONARY EMBOLISM [None]
